FAERS Safety Report 7279243-8 (Version None)
Quarter: 2011Q1

REPORT INFORMATION
  Report Type: 
  Country: None (occurrence: None)
  Receive Date: 20110207
  Receipt Date: 20110202
  Transmission Date: 20110831
  Serious: Yes (Other)
  Sender: FDA-Public Use
  Company Number: BR-PFIZER INC-2011002330

PATIENT
  Age: 45 Year
  Sex: Female

DRUGS (5)
  1. VENLAFAXINE [Concomitant]
     Indication: ANXIETY
  2. NEURONTIN [Suspect]
     Indication: MOOD SWINGS
  3. GEODON [Suspect]
     Indication: DEPRESSION
     Dosage: 40 MG, 1X/DAY
     Route: 048
     Dates: start: 20101201
  4. NEURONTIN [Suspect]
     Indication: ANXIETY
     Dosage: 300 MG, 1X/DAY
     Route: 048
     Dates: start: 20110102, end: 20110101
  5. VENLAFAXINE [Concomitant]
     Indication: DEPRESSION
     Dosage: 225 MG, 1X/DAY

REACTIONS (8)
  - ANXIETY [None]
  - DEPRESSION [None]
  - ABNORMAL BEHAVIOUR [None]
  - COGNITIVE DISORDER [None]
  - RESTLESSNESS [None]
  - NEGATIVE THOUGHTS [None]
  - AGITATION [None]
  - PRURITUS [None]
